FAERS Safety Report 4422174-9 (Version None)
Quarter: 2004Q3

REPORT INFORMATION
  Report Type: 
  Country: None (occurrence: None)
  Receive Date: 20040810
  Receipt Date: 20040730
  Transmission Date: 20050211
  Serious: Yes (Hospitalization)
  Sender: FDA-Public Use
  Company Number: PHBS2004IN10157

PATIENT
  Age: 44 Year
  Sex: Female

DRUGS (2)
  1. CLOFAZIMINE [Suspect]
     Indication: LEPROMATOUS LEPROSY
     Dosage: 300 MG/D
     Route: 065
     Dates: start: 19980901, end: 20000301
  2. CLOFAZIMINE [Suspect]
     Dosage: 300 MG/D
     Route: 065
     Dates: start: 20010401, end: 20020501

REACTIONS (10)
  - ABDOMINAL PAIN [None]
  - ABDOMINAL PAIN LOWER [None]
  - COLON CANCER STAGE IV [None]
  - COLOSTOMY [None]
  - CRYSTAL DEPOSIT INTESTINE [None]
  - INTESTINAL OBSTRUCTION [None]
  - METASTASES TO LIVER [None]
  - RECTAL HAEMORRHAGE [None]
  - SKIN DISCOLOURATION [None]
  - WEIGHT DECREASED [None]
